FAERS Safety Report 21114753 (Version 1)
Quarter: 2022Q3

REPORT INFORMATION
  Report Type: Spontaneous
  Country: CN (occurrence: CN)
  Receive Date: 20220721
  Receipt Date: 20220721
  Transmission Date: 20221026
  Serious: Yes (Other)
  Sender: FDA-Public Use
  Company Number: CN-009507513-2207CHN005789

PATIENT
  Age: 96 Year
  Sex: Male
  Weight: 78 kg

DRUGS (4)
  1. CILASTATIN SODIUM\IMIPENEM [Suspect]
     Active Substance: CILASTATIN SODIUM\IMIPENEM
     Indication: Septic shock
     Dosage: 1 GRAM, Q8H, IV DRIP
     Route: 041
     Dates: start: 20220613, end: 20220618
  2. SODIUM CHLORIDE [Suspect]
     Active Substance: SODIUM CHLORIDE
     Indication: Anti-infective therapy
     Dosage: 200 MILLILITER, Q8H, IV DRIP
     Route: 041
     Dates: start: 20220613, end: 20220613
  3. SODIUM CHLORIDE [Suspect]
     Active Substance: SODIUM CHLORIDE
     Dosage: 50 ML CONTINUOUSLY PUMPED IN 12 HOURS (Q12)
     Route: 041
     Dates: start: 20220617, end: 20220617
  4. VALPROATE SODIUM [Suspect]
     Active Substance: VALPROATE SODIUM
     Indication: Seizure prophylaxis
     Dosage: 0.4 GRAM
     Dates: start: 20220617, end: 20220617

REACTIONS (3)
  - Epilepsy [Recovering/Resolving]
  - Loss of personal independence in daily activities [Unknown]
  - Drug ineffective [Unknown]

NARRATIVE: CASE EVENT DATE: 20220617
